FAERS Safety Report 9520221 (Version 3)
Quarter: 2013Q4

REPORT INFORMATION
  Report Type: Spontaneous
  Country: US (occurrence: US)
  Receive Date: 20130912
  Receipt Date: 20131016
  Transmission Date: 20140711
  Serious: No
  Sender: FDA-Public Use
  Company Number: US-009507513-1309USA004396

PATIENT
  Age: 31 Year
  Sex: Female
  Weight: 71.66 kg

DRUGS (3)
  1. NEXPLANON [Suspect]
     Indication: CONTRACEPTION
     Dosage: UNK
     Route: 059
     Dates: start: 20130906, end: 20130906
  2. NEXPLANON [Suspect]
     Dosage: UNK
     Route: 059
     Dates: start: 20130906
  3. MIRALAX [Concomitant]

REACTIONS (3)
  - Device difficult to use [Recovered/Resolved]
  - Device deployment issue [Recovered/Resolved]
  - Product quality issue [Unknown]
